FAERS Safety Report 8406688-2 (Version None)
Quarter: 2012Q2

REPORT INFORMATION
  Report Type: 
  Country: None (occurrence: None)
  Receive Date: 20120604
  Receipt Date: 20120523
  Transmission Date: 20120825
  Serious: Yes (Death, Hospitalization)
  Sender: FDA-Public Use
  Company Number: US-BRISTOL-MYERS SQUIBB COMPANY-16619710

PATIENT
  Age: 82 Year
  Sex: Male
  Weight: 65 kg

DRUGS (10)
  1. GEMTUZUMAB OZOGAMICIN [Suspect]
     Indication: ACUTE MYELOID LEUKAEMIA
     Dosage: OVER 2 HRS ON DAY 8,2ND COURSE ON 19JAN12 5.6MG,LAST THERAPY ON 26JAN12
     Route: 042
     Dates: start: 20120105
  2. OMEPRAZOLE [Concomitant]
  3. CIPROFLOXACIN [Concomitant]
  4. HYDROXYUREA [Suspect]
     Indication: ACUTE MYELOID LEUKAEMIA
     Dosage: 2ND COURSE ON 19JAN12
     Route: 048
     Dates: start: 20120105
  5. BIOTIN [Concomitant]
  6. METOPROLOL TARTRATE [Concomitant]
  7. GABAPENTIN [Concomitant]
  8. FLUCONAZOLE [Concomitant]
  9. AZACITIDINE [Suspect]
     Indication: ACUTE MYELOID LEUKAEMIA
     Dosage: ROUTE OF ADM:SC OR IV OVER 10-40MIN ON DAYS 1-7,2ND COURSE ON 19JAN12 980MG,LAST THERAPY ON 25JAN12
     Route: 042
     Dates: start: 20120105
  10. ACYCLOVIR [Concomitant]

REACTIONS (4)
  - PNEUMONIA [None]
  - PULMONARY SEPSIS [None]
  - SOMNOLENCE [None]
  - HYPOTENSION [None]
